FAERS Safety Report 6222615-0 (Version None)
Quarter: 2009Q2

REPORT INFORMATION
  Report Type: 
  Country: None (occurrence: None)
  Receive Date: 20090609
  Receipt Date: 20090609
  Transmission Date: 20091009
  Serious: Yes (Hospitalization)
  Sender: FDA-Public Use
  Company Number: None

PATIENT
  Sex: Male
  Weight: 44.5 kg

DRUGS (2)
  1. CISPLATIN [Suspect]
     Dosage: 40 MG
     Dates: end: 20090302
  2. TAXOL [Suspect]
     Dosage: 80 MG
     Dates: end: 20090302

REACTIONS (14)
  - ASPIRATION [None]
  - CATHETER RELATED COMPLICATION [None]
  - DEHYDRATION [None]
  - DIVERTICULAR FISTULA [None]
  - DIVERTICULUM OESOPHAGEAL [None]
  - EROSIVE OESOPHAGITIS [None]
  - HAEMOGLOBIN DECREASED [None]
  - MEDIASTINITIS [None]
  - OESOPHAGEAL MASS [None]
  - OESOPHAGEAL PERFORATION [None]
  - PAIN [None]
  - POST PROCEDURAL COMPLICATION [None]
  - RESPIRATORY FAILURE [None]
  - WEIGHT DECREASED [None]
